FAERS Safety Report 12561445 (Version 2)
Quarter: 2020Q2

REPORT INFORMATION
  Report Type: Spontaneous
  Country: US (occurrence: US)
  Receive Date: 20160715
  Receipt Date: 20200528
  Transmission Date: 20200713
  Serious: Yes (Death, Hospitalization, Other)
  Sender: FDA-Public Use
  Company Number: US-009507513-1607USA006837

PATIENT
  Sex: Male
  Weight: 104.31 kg

DRUGS (1)
  1. JANUVIA [Suspect]
     Active Substance: SITAGLIPTIN PHOSPHATE
     Indication: TYPE 2 DIABETES MELLITUS
     Dosage: 1 TABLET, ONCE DAILY
     Route: 048
     Dates: start: 20101109, end: 20130817

REACTIONS (24)
  - Adenocarcinoma pancreas [Fatal]
  - Pancreatic fistula [Unknown]
  - Pancreatic carcinoma metastatic [Unknown]
  - Gout [Unknown]
  - Hepatic cyst [Unknown]
  - Duodenal ulcer [Unknown]
  - Impaired gastric emptying [Unknown]
  - Cataract [Unknown]
  - Obesity [Unknown]
  - Oliguria [Unknown]
  - Coeliac artery compression syndrome [Unknown]
  - Peripancreatic fluid collection [Unknown]
  - Peripheral swelling [Unknown]
  - Renal cyst [Unknown]
  - Spinal osteoarthritis [Unknown]
  - Hyperglycaemia [Unknown]
  - Atelectasis [Not Recovered/Not Resolved]
  - Cholangitis [Unknown]
  - Hypoxia [Unknown]
  - Bacteraemia [Unknown]
  - Renal atrophy [Unknown]
  - Tachycardia [Unknown]
  - Hypoacusis [Unknown]
  - Vascular calcification [Unknown]

NARRATIVE: CASE EVENT DATE: 2013
